FAERS Safety Report 5248033-X (Version None)
Quarter: 2007Q1

REPORT INFORMATION
  Report Type: 
  Country: None (occurrence: None)
  Receive Date: 20070222
  Receipt Date: 20070208
  Transmission Date: 20070707
  Serious: Yes (Hospitalization)
  Sender: FDA-Public Use
  Company Number: T07-GER-00629-01

PATIENT
  Age: 43 Year
  Sex: Male
  Weight: 70 kg

DRUGS (7)
  1. CIPRALEX (ESCITALOPRAM) [Suspect]
     Indication: DEPRESSION
     Dosage: 10 MG QD PO
     Route: 048
     Dates: start: 20061013, end: 20061018
  2. CIPRALEX (ESCITALOPRAM) [Suspect]
     Indication: PHOBIA
     Dosage: 10 MG QD PO
     Route: 048
     Dates: start: 20061013, end: 20061018
  3. CIPRALEX (ESCITALOPRAM) [Suspect]
     Indication: POST-TRAUMATIC STRESS DISORDER
     Dosage: 10 MG QD PO
     Route: 048
     Dates: start: 20061013, end: 20061018
  4. CIPRALEX (ESCITALOPRAM) [Suspect]
     Indication: DEPRESSION
     Dosage: 20 MG QD PO
     Route: 048
     Dates: start: 20061019
  5. CIPRALEX (ESCITALOPRAM) [Suspect]
     Indication: PHOBIA
     Dosage: 20 MG QD PO
     Route: 048
     Dates: start: 20061019
  6. CIPRALEX (ESCITALOPRAM) [Suspect]
     Indication: POST-TRAUMATIC STRESS DISORDER
     Dosage: 20 MG QD PO
     Route: 048
     Dates: start: 20061019
  7. LYRICA [Concomitant]

REACTIONS (1)
  - NO THERAPEUTIC RESPONSE [None]
